FAERS Safety Report 7621725-0 (Version None)
Quarter: 2011Q3

REPORT INFORMATION
  Report Type: 
  Country: None (occurrence: None)
  Receive Date: 20110719
  Receipt Date: 20110715
  Transmission Date: 20111222
  Serious: Yes (Other)
  Sender: FDA-Public Use
  Company Number: US-AMGEN-USASP2010001825

PATIENT
  Age: 61 Year
  Sex: Male
  Weight: 91.61 kg

DRUGS (3)
  1. RED BLOOD CELLS [Concomitant]
  2. NPLATE [Suspect]
     Indication: IDIOPATHIC THROMBOCYTOPENIC PURPURA
     Dosage: 250 A?G, UNK
     Dates: start: 20090901, end: 20091223
  3. NEUPOGEN [Concomitant]
     Dosage: 480 A?G, UNK
     Route: 058

REACTIONS (7)
  - PANCYTOPENIA [None]
  - ANAEMIA [None]
  - PALLOR [None]
  - MYELODYSPLASTIC SYNDROME [None]
  - DRUG INEFFECTIVE [None]
  - SKIN TURGOR DECREASED [None]
  - FATIGUE [None]
